FAERS Safety Report 9067504 (Version 2)
Quarter: 2013Q2

REPORT INFORMATION
  Report Type: Report from Study
  Country: AR (occurrence: AR)
  Receive Date: 20130129
  Receipt Date: 20130501
  Transmission Date: 20140414
  Serious: Yes (Hospitalization)
  Sender: FDA-Public Use
  Company Number: PHHY2013AR007714

PATIENT
  Age: 68 Year
  Sex: Male

DRUGS (1)
  1. VALSARTAN [Suspect]
     Indication: HYPERTENSION
     Dosage: 1 DF (80 MG), UNK
     Dates: start: 2003

REACTIONS (9)
  - Road traffic accident [Recovered/Resolved]
  - Head injury [Recovered/Resolved]
  - Skull fracture [Recovered/Resolved]
  - Loss of consciousness [Recovered/Resolved]
  - Disorientation [Not Recovered/Not Resolved]
  - Memory impairment [Recovered/Resolved]
  - Anosmia [Recovered/Resolved]
  - Ageusia [Recovered/Resolved]
  - Deafness [Recovered/Resolved]
